FAERS Safety Report 22131173 (Version 1)
Quarter: 2023Q1

REPORT INFORMATION
  Report Type: Spontaneous
  Country: GB (occurrence: GB)
  Receive Date: 20230323
  Receipt Date: 20230323
  Transmission Date: 20230417
  Serious: Yes (Other)
  Sender: FDA-Public Use
  Company Number: None

PATIENT
  Sex: Female
  Weight: 112 kg

DRUGS (11)
  1. FLUOROMETHOLONE [Suspect]
     Active Substance: FLUOROMETHOLONE
     Indication: Keratomileusis
     Dosage: 1 DROP PER EYE, EVERY 2 HOURS WHEN AWAKE FOR FIRST DAY, THEN 4 TIMES A DAY FOR 7 DAYS
     Dates: start: 20230304, end: 20230308
  2. OFLOXACIN [Concomitant]
     Active Substance: OFLOXACIN
     Indication: Keratomileusis
     Dosage: UNK
     Dates: start: 20230304, end: 20230311
  3. BIOTIN [Concomitant]
     Active Substance: BIOTIN
     Indication: Gastrectomy
     Dosage: UNK
     Dates: start: 20220214
  4. VITAMIN D NOS [Concomitant]
     Active Substance: VITAMIN D NOS
     Indication: Gastrectomy
     Dosage: UNK
     Dates: start: 20200615
  5. VENLAFAXINE [Concomitant]
     Active Substance: VENLAFAXINE HYDROCHLORIDE
     Indication: Anxiety disorder
     Dosage: UNK
     Dates: start: 2021
  6. FERROUS SULFATE [Concomitant]
     Active Substance: FERROUS SULFATE
     Indication: Gastrectomy
     Dosage: UNK
     Dates: start: 20221115
  7. CALCIUM CARBONATE\CHOLECALCIFEROL [Concomitant]
     Active Substance: CALCIUM CARBONATE\CHOLECALCIFEROL
     Indication: Gastrectomy
     Dosage: UNK
     Dates: start: 20221122
  8. FOLIC ACID\IRON\MINERALS\VITAMINS [Concomitant]
     Active Substance: FOLIC ACID\IRON\MINERALS\VITAMINS
     Indication: Gastrectomy
     Dosage: UNK
     Dates: start: 20221115
  9. TOLTERODINE [Concomitant]
     Active Substance: TOLTERODINE
     Indication: Hypertonic bladder
     Dosage: UNK
     Dates: start: 2022
  10. PROPRANOLOL [Concomitant]
     Active Substance: PROPRANOLOL HYDROCHLORIDE
     Indication: Migraine
     Dosage: UNK
     Dates: start: 2020
  11. HYDROXOCOBALAMIN [Concomitant]
     Active Substance: HYDROXOCOBALAMIN
     Indication: Gastrectomy
     Dosage: UNK
     Dates: start: 20221115

REACTIONS (4)
  - Diarrhoea [Recovered/Resolved]
  - Headache [Recovered/Resolved]
  - Nausea [Recovering/Resolving]
  - Vision blurred [Recovering/Resolving]

NARRATIVE: CASE EVENT DATE: 20230304
